FAERS Safety Report 16585567 (Version 4)
Quarter: 2020Q4

REPORT INFORMATION
  Report Type: Report from Study
  Country: JP (occurrence: JP)
  Receive Date: 20190717
  Receipt Date: 20201019
  Transmission Date: 20210113
  Serious: Yes (Hospitalization, Other)
  Sender: FDA-Public Use
  Company Number: JP-GILEAD-2019-0417748

PATIENT
  Age: 79 Year
  Sex: Male
  Weight: 59.3 kg

DRUGS (16)
  1. SOFOSBUVIR W/VELPATASVIR [Suspect]
     Active Substance: SOFOSBUVIR\VELPATASVIR
     Indication: HEPATITIS C
     Dosage: 1 DOSAGE FORM, QD (MORNING)
     Route: 048
     Dates: start: 20190704, end: 20190723
  2. ZACRAS [Concomitant]
     Active Substance: AMLODIPINE BESYLATE\AZILSARTAN
     Dosage: 1 DOSAGE FORM, QD (EVENING)
     Route: 048
  3. JANUVIA [Concomitant]
     Active Substance: SITAGLIPTIN PHOSPHATE
     Dosage: 50 MG, QD (MORNING)
     Route: 048
  4. CARTIN [LEVOCARNITINE] [Concomitant]
     Dosage: 500 MG, TID
     Route: 048
  5. MONILAC [Concomitant]
     Active Substance: LACTULOSE
     Dosage: 20 ML, TID
     Route: 048
  6. ISOSORBIDE MONONITRATE. [Concomitant]
     Active Substance: ISOSORBIDE MONONITRATE
     Dosage: 20 MG, BID (MORNING AND EVENING)
     Route: 048
  7. LUPRAC [Concomitant]
     Active Substance: TORSEMIDE
     Dosage: 4 MG, QD (MORNING)
     Route: 048
  8. SOFOSBUVIR W/VELPATASVIR [Suspect]
     Active Substance: SOFOSBUVIR\VELPATASVIR
     Indication: HEPATIC CIRRHOSIS
  9. FUROSEMIDE. [Concomitant]
     Active Substance: FUROSEMIDE
     Dosage: 2 ML, UNK
     Route: 042
     Dates: start: 20190902
  10. SPIRONOLACTONE. [Concomitant]
     Active Substance: SPIRONOLACTONE
     Dosage: 25 MG, QD (MORNING)
     Route: 048
     Dates: start: 20190405, end: 20190713
  11. PROMAC [POLAPREZINC] [Concomitant]
     Active Substance: POLAPREZINC
     Dosage: 1 DOSAGE FORM, BID (MORNING AND EVENING)
     Route: 048
  12. NEXIUM MUPS [ESOMEPRAZOLE MAGNESIUM] [Concomitant]
     Active Substance: ESOMEPRAZOLE MAGNESIUM
     Dosage: 20 MG, QD (MORNING)
     Route: 048
  13. RIFXIMA [Concomitant]
     Active Substance: RIFAXIMIN
     Dosage: 200 MG, TID
     Route: 048
     Dates: start: 20190412
  14. LIVACT [ISOLEUCINE;LEUCINE;VALINE] [Concomitant]
     Dosage: 1 DOSAGE FORM, TID
     Route: 048
  15. FUROSEMIDE. [Concomitant]
     Active Substance: FUROSEMIDE
     Dosage: 20 MG, QD (MORNING)
     Route: 048
     Dates: start: 20190405, end: 20190713
  16. MAGMITT [Concomitant]
     Active Substance: MAGNESIUM OXIDE
     Dosage: 330 MG, TID
     Route: 048

REACTIONS (4)
  - Drug ineffective [Unknown]
  - Ascites [Recovering/Resolving]
  - Hepatitis C [Unknown]
  - Hepatic encephalopathy [Recovering/Resolving]

NARRATIVE: CASE EVENT DATE: 20190709
